FAERS Safety Report 7378701-5 (Version None)
Quarter: 2011Q1

REPORT INFORMATION
  Report Type: 
  Country: None (occurrence: None)
  Receive Date: 20110328
  Receipt Date: 20110317
  Transmission Date: 20110831
  Serious: Yes (Other)
  Sender: FDA-Public Use
  Company Number: US-PERRIGO-11US002441

PATIENT
  Sex: Female
  Weight: 60.317 kg

DRUGS (1)
  1. CALCIUM POLYCARBOPHIL 625 MG 4V6 [Suspect]
     Indication: CONSTIPATION
     Dosage: 1 TABLET, ONCE
     Route: 048
     Dates: start: 20110316, end: 20110316

REACTIONS (4)
  - DYSPNOEA [None]
  - FEELING ABNORMAL [None]
  - DRUG INEFFECTIVE [None]
  - DYSPEPSIA [None]
